FAERS Safety Report 13876165 (Version 1)
Quarter: 2017Q3

REPORT INFORMATION
  Report Type: Spontaneous
  Country: US (occurrence: US)
  Receive Date: 20170817
  Receipt Date: 20170817
  Transmission Date: 20171127
  Serious: No
  Sender: FDA-Public Use
  Company Number: US-PFIZER INC-2017356448

PATIENT
  Age: 57 Year
  Sex: Female
  Weight: 79 kg

DRUGS (3)
  1. LYRICA [Suspect]
     Active Substance: PREGABALIN
     Indication: HYPOAESTHESIA
  2. LYRICA [Suspect]
     Active Substance: PREGABALIN
     Indication: NEURALGIA
     Dosage: 75 MG, 1X/DAY
     Route: 048
     Dates: start: 20170810
  3. LYRICA [Suspect]
     Active Substance: PREGABALIN
     Indication: PARAESTHESIA

REACTIONS (4)
  - Sedation [Recovering/Resolving]
  - Fatigue [Recovering/Resolving]
  - Intentional product use issue [Unknown]
  - Somnolence [Unknown]

NARRATIVE: CASE EVENT DATE: 201708
